FAERS Safety Report 23957266 (Version 1)
Quarter: 2024Q2

REPORT INFORMATION
  Report Type: Spontaneous
  Country: US (occurrence: US)
  Receive Date: 20240610
  Receipt Date: 20240610
  Transmission Date: 20240716
  Serious: Yes (Hospitalization)
  Sender: FDA-Public Use
  Company Number: US-MYLANLABS-2024M1051845

PATIENT
  Age: 7 Decade
  Sex: Female

DRUGS (9)
  1. ETOPOSIDE [Suspect]
     Active Substance: ETOPOSIDE
     Indication: Diffuse large B-cell lymphoma recurrent
     Dosage: UNK, R-CEOP REGIMEN
     Route: 065
  2. PREDNISONE [Suspect]
     Active Substance: PREDNISONE
     Indication: Diffuse large B-cell lymphoma recurrent
     Dosage: UNK, R-CEOP REGIMEN
     Route: 065
  3. AZITHROMYCIN [Suspect]
     Active Substance: AZITHROMYCIN
     Indication: Mycobacterial infection
     Dosage: UNK
     Route: 065
  4. RIFAMPIN [Suspect]
     Active Substance: RIFAMPIN
     Indication: Mycobacterial infection
     Dosage: UNK
     Route: 065
  5. RITUXIMAB [Suspect]
     Active Substance: RITUXIMAB
     Indication: Diffuse large B-cell lymphoma recurrent
     Dosage: UNK, R-CEOP REGIMEN
     Route: 065
  6. CYCLOPHOSPHAMIDE [Suspect]
     Active Substance: CYCLOPHOSPHAMIDE
     Indication: Diffuse large B-cell lymphoma recurrent
     Dosage: UNK, R-CEOP REGIMEN
     Route: 065
  7. VINCRISTINE [Suspect]
     Active Substance: VINCRISTINE
     Indication: Diffuse large B-cell lymphoma recurrent
     Dosage: UNK, R-CEOP REGIMEN
     Route: 065
  8. ETHAMBUTOL [Suspect]
     Active Substance: ETHAMBUTOL HYDROCHLORIDE
     Indication: Mycobacterial infection
     Dosage: UNK
     Route: 065
  9. POSACONAZOLE [Concomitant]
     Active Substance: POSACONAZOLE
     Indication: Fungal infection
     Dosage: UNK
     Route: 065

REACTIONS (4)
  - Pancytopenia [Unknown]
  - Mycobacterial infection [Recovered/Resolved]
  - Chromaturia [Unknown]
  - Off label use [Unknown]
